FAERS Safety Report 8348104-5 (Version None)
Quarter: 2012Q2

REPORT INFORMATION
  Report Type: 
  Country: None (occurrence: None)
  Receive Date: 20120509
  Receipt Date: 20120504
  Transmission Date: 20120825
  Serious: Yes (Death, Hospitalization)
  Sender: FDA-Public Use
  Company Number: PHHY2012MX038597

PATIENT
  Sex: Male

DRUGS (1)
  1. ONBREZ [Suspect]
     Indication: CHRONIC OBSTRUCTIVE PULMONARY DISEASE
     Dosage: 150 UG, QD
     Dates: start: 20120328, end: 20120427

REACTIONS (5)
  - LUNG NEOPLASM MALIGNANT [None]
  - FATIGUE [None]
  - DYSPNOEA [None]
  - SPEECH DISORDER [None]
  - AGITATION [None]
